FAERS Safety Report 11158314 (Version 1)
Quarter: 2015Q2

REPORT INFORMATION
  Report Type: Spontaneous
  Country: GB (occurrence: GB)
  Receive Date: 20150603
  Receipt Date: 20150603
  Transmission Date: 20150821
  Serious: Yes (Other)
  Sender: FDA-Public Use
  Company Number: GB-AMGEN-GBRSP2015052236

PATIENT
  Age: 42 Year
  Sex: Male

DRUGS (2)
  1. INSULIN [Concomitant]
     Active Substance: INSULIN NOS
  2. ARANESP [Suspect]
     Active Substance: DARBEPOETIN ALFA
     Indication: PRODUCT USED FOR UNKNOWN INDICATION
     Dosage: 50 MUG, Q2WK (FORTNIGHTLY)
     Route: 065

REACTIONS (1)
  - Abdominal infection [Unknown]
